FAERS Safety Report 5386999-8 (Version None)
Quarter: 2007Q3

REPORT INFORMATION
  Report Type: 
  Country: None (occurrence: None)
  Receive Date: 20070713
  Receipt Date: 20070706
  Transmission Date: 20080115
  Serious: Yes (Other)
  Sender: FDA-Public Use
  Company Number: JP-MERCK-0705USA05600

PATIENT
  Age: 84 Year
  Sex: Female
  Weight: 45 kg

DRUGS (4)
  1. FOSAMAX [Suspect]
     Indication: OSTEOPOROSIS
     Route: 048
     Dates: start: 20061003
  2. FOSAMAX [Suspect]
     Route: 048
     Dates: start: 20041109, end: 20061002
  3. FOSAMAX [Suspect]
     Route: 048
     Dates: start: 20061003
  4. ELCITONIN [Suspect]
     Indication: OSTEOPOROSIS
     Route: 051
     Dates: start: 20040618, end: 20070508

REACTIONS (5)
  - ASPARTATE AMINOTRANSFERASE INCREASED [None]
  - DIZZINESS [None]
  - HEPATIC FUNCTION ABNORMAL [None]
  - INAPPROPRIATE SCHEDULE OF DRUG ADMINISTRATION [None]
  - VERTIGO [None]
